FAERS Safety Report 15369009 (Version 1)
Quarter: 2018Q3

REPORT INFORMATION
  Report Type: Spontaneous
  Country: BE (occurrence: BE)
  Receive Date: 20180911
  Receipt Date: 20180911
  Transmission Date: 20181010
  Serious: Yes (Other)
  Sender: FDA-Public Use
  Company Number: BE-BAXTER-2018BAX023081

PATIENT
  Age: 27 Year
  Sex: Male

DRUGS (7)
  1. SEVOFLURANE BAXTER 100%, LIQUIDE POUR INHALATION PAR VAPEUR [Suspect]
     Active Substance: SEVOFLURANE
     Indication: SEDATIVE THERAPY
     Dosage: SEVOFLURANE END?TIDAL CONCENTRATION OF 1% VOL AND INJECTION RATE OF 6?10 ML/H
     Route: 055
  2. CLONIDINE. [Concomitant]
     Active Substance: CLONIDINE
     Indication: AGITATION
     Route: 065
  3. MIDAZOLAM [Concomitant]
     Active Substance: MIDAZOLAM HYDROCHLORIDE
     Indication: AGITATION
     Dosage: UP TO 100 MG/D
     Route: 065
  4. AMOXICILLIN AND CLAVULANATE [Concomitant]
     Active Substance: AMOXICILLIN\CLAVULANIC ACID
     Indication: PROPHYLAXIS
     Route: 065
  5. SUFENTANIL [Concomitant]
     Active Substance: SUFENTANIL
     Indication: AGITATION
     Route: 065
  6. PROPOFOL. [Concomitant]
     Active Substance: PROPOFOL
     Indication: SEDATION
     Route: 042
  7. KETAMINE [Concomitant]
     Active Substance: KETAMINE
     Indication: SEDATION
     Route: 042

REACTIONS (1)
  - Nephrogenic diabetes insipidus [Recovered/Resolved]
